FAERS Safety Report 7156980-7 (Version None)
Quarter: 2010Q4

REPORT INFORMATION
  Report Type: 
  Country: None (occurrence: None)
  Receive Date: 20101214
  Receipt Date: 20100112
  Transmission Date: 20110411
  Serious: No
  Sender: FDA-Public Use
  Company Number: US-ASTRAZENECA-2010SE01411

PATIENT
  Sex: Female

DRUGS (3)
  1. CRESTOR [Suspect]
     Route: 048
     Dates: start: 20100105, end: 20100111
  2. SYNTHROID [Concomitant]
  3. ASPIRIN [Concomitant]

REACTIONS (4)
  - ARTHRALGIA [None]
  - FAECES DISCOLOURED [None]
  - MYALGIA [None]
  - NECK PAIN [None]
